FAERS Safety Report 11575870 (Version 1)
Quarter: 2015Q3

REPORT INFORMATION
  Report Type: Spontaneous
  Country: US (occurrence: None)
  Receive Date: 20150929
  Receipt Date: 20150929
  Transmission Date: 20151125
  Serious: Yes (Life-Threatening, Hospitalization)
  Sender: FDA-Public Use
  Company Number: None

PATIENT
  Age: 51 Year
  Sex: Female
  Weight: 54.43 kg

DRUGS (6)
  1. ARAVA [Concomitant]
     Active Substance: LEFLUNOMIDE
  2. FISH OIL [Concomitant]
     Active Substance: FISH OIL
  3. FOLIC ACID. [Concomitant]
     Active Substance: FOLIC ACID
  4. PLAQUINIL [Concomitant]
  5. VITAMIN D3 [Concomitant]
     Active Substance: CHOLECALCIFEROL
  6. DICLOFENAC 75MG [Suspect]
     Active Substance: DICLOFENAC
     Indication: RHEUMATOID ARTHRITIS
     Dosage: 2 PILLS
     Route: 048
     Dates: start: 20131201, end: 20150627

REACTIONS (4)
  - Abdominal pain [None]
  - Gastric ulcer perforation [None]
  - Impaired work ability [None]
  - Economic problem [None]

NARRATIVE: CASE EVENT DATE: 20150627
